FAERS Safety Report 5718842-9 (Version None)
Quarter: 2008Q2

REPORT INFORMATION
  Report Type: 
  Country: None (occurrence: None)
  Receive Date: 20080425
  Receipt Date: 20080418
  Transmission Date: 20081010
  Serious: Yes (Hospitalization)
  Sender: FDA-Public Use
  Company Number: US-GENENTECH-257708

PATIENT
  Sex: Female
  Weight: 52.9 kg

DRUGS (16)
  1. APOMAB (PRO95780) [Suspect]
     Indication: NON-SMALL CELL LUNG CANCER
     Dosage: 15 MG/KG, UNK
     Route: 042
     Dates: start: 20080125
  2. APOMAB (PRO95780) [Suspect]
     Dosage: 10 MG/KG, UNK
     Route: 042
  3. BEVACIZUMAB [Suspect]
     Indication: NON-SMALL CELL LUNG CANCER
     Dosage: 15 MG/KG, UNK
     Route: 042
     Dates: start: 20080125
  4. CARBOPLATIN [Suspect]
     Indication: NON-SMALL CELL LUNG CANCER
     Dosage: 6 AUC, UNK
     Route: 042
     Dates: start: 20080125
  5. PACLITAXEL [Suspect]
     Indication: NON-SMALL CELL LUNG CANCER
     Dosage: 200 MG/M2, UNK
     Route: 042
     Dates: start: 20080125
  6. TYLENOL EXTRA STRENGTH [Concomitant]
     Indication: BACK PAIN
     Dates: start: 20080114, end: 20080128
  7. OXYCODONE HCL [Concomitant]
     Indication: PAIN IN EXTREMITY
     Dates: start: 20080125
  8. VICODIN [Concomitant]
     Indication: BACK PAIN
     Dates: start: 20080129
  9. COMPAZINE [Concomitant]
     Indication: NAUSEA
     Dates: start: 20080127
  10. DIPHENHYDRAMINE HCL [Concomitant]
     Indication: PREMEDICATION
     Dates: start: 20080125
  11. CIMETIDINE [Concomitant]
     Indication: PREMEDICATION
     Dates: start: 20080125
  12. PALONOSETRON [Concomitant]
     Indication: PREMEDICATION
     Dates: start: 20080125
  13. DEXAMETHASONE TAB [Concomitant]
     Indication: PREMEDICATION
     Dates: start: 20080125
  14. LOPRESSOR [Concomitant]
     Indication: DRUG USE FOR UNKNOWN INDICATION
     Dosage: 12.5 MG, QID
  15. SENOKOT [Concomitant]
     Indication: DRUG USE FOR UNKNOWN INDICATION
     Dosage: 1 UNK, BID
     Route: 048
  16. ASPIRIN [Concomitant]
     Indication: DRUG USE FOR UNKNOWN INDICATION
     Dosage: 325 MG, QD

REACTIONS (1)
  - LIVER FUNCTION TEST ABNORMAL [None]
